FAERS Safety Report 25002983 (Version 2)
Quarter: 2025Q1

REPORT INFORMATION
  Report Type: Spontaneous
  Country: US (occurrence: US)
  Receive Date: 20250224
  Receipt Date: 20250321
  Transmission Date: 20250409
  Serious: Yes (Hospitalization, Other)
  Sender: GRAVITI PHARMACEUTICALS PRIVATE LIMITED
  Company Number: US-GRAVITIPHARMA-GRA-2502-US-LIT-0099

PATIENT
  Age: 37 Year
  Sex: Female

DRUGS (11)
  1. BUPROPION HYDROCHLORIDE [Suspect]
     Active Substance: BUPROPION HYDROCHLORIDE
     Indication: Depression
     Route: 065
  2. CITALOPRAM [Suspect]
     Active Substance: CITALOPRAM
     Indication: Depression
     Route: 065
  3. METOCLOPRAMIDE [Suspect]
     Active Substance: METOCLOPRAMIDE
     Indication: Gastrooesophageal reflux disease
     Route: 065
  4. FLUOXETINE [Suspect]
     Active Substance: FLUOXETINE HYDROCHLORIDE
     Indication: Depression
     Route: 065
  5. DEXBROMPHENIRAMINE [Concomitant]
     Active Substance: DEXBROMPHENIRAMINE
     Indication: Product used for unknown indication
     Route: 065
  6. PHENYLEPHRINE [Concomitant]
     Active Substance: PHENYLEPHRINE
     Indication: Product used for unknown indication
     Route: 065
  7. SALINE [Concomitant]
     Active Substance: SODIUM CHLORIDE
     Indication: Anxiety
     Route: 065
  8. LORAZEPAM [Concomitant]
     Active Substance: LORAZEPAM
     Indication: Anxiety
     Route: 042
  9. HERBALS\UNCARIA TOMENTOSA WHOLE [Concomitant]
     Active Substance: HERBALS\UNCARIA TOMENTOSA WHOLE
     Indication: Weight decreased
     Route: 065
  10. HERBALS\UNCARIA TOMENTOSA WHOLE [Concomitant]
     Active Substance: HERBALS\UNCARIA TOMENTOSA WHOLE
     Indication: Nutritional supplementation
  11. BENZODIAZEPINE [Concomitant]
     Active Substance: BENZODIAZEPINE
     Indication: Anxiety
     Route: 065

REACTIONS (1)
  - Serotonin syndrome [Unknown]
